FAERS Safety Report 14267077 (Version 4)
Quarter: 2018Q1

REPORT INFORMATION
  Report Type: Spontaneous
  Country: US (occurrence: US)
  Receive Date: 20171211
  Receipt Date: 20180313
  Transmission Date: 20180508
  Serious: No
  Sender: FDA-Public Use
  Company Number: US-PFIZER INC-2017524801

PATIENT
  Age: 69 Year
  Sex: Male
  Weight: 77.11 kg

DRUGS (27)
  1. RAPAMUNE [Suspect]
     Active Substance: SIROLIMUS
     Dosage: 3 MG, DAILY
     Route: 048
     Dates: start: 20160120
  2. GABAPENTIN. [Concomitant]
     Active Substance: GABAPENTIN
     Indication: BACK PAIN
     Dosage: 100MG, TAKES 3 A DAY
  3. FUROSEMIDE. [Concomitant]
     Active Substance: FUROSEMIDE
     Indication: PERIPHERAL SWELLING
     Dosage: 20MG, TAKES 1, 3 TIMES A DAY
  4. RAPAMUNE [Suspect]
     Active Substance: SIROLIMUS
     Indication: HEART TRANSPLANT
     Dosage: 1MG, 2 TABLETS AT ONCE BY MOUTH DAILY
     Route: 048
  5. CLOPIDOGREL [Concomitant]
     Active Substance: CLOPIDOGREL BISULFATE
     Indication: BLOOD DISORDER
     Dosage: 75 MG, 1X/DAY
  6. POTASSIUM CITRATE. [Concomitant]
     Active Substance: POTASSIUM CITRATE
     Indication: RENAL LITHIASIS PROPHYLAXIS
     Dosage: 10MEQ, TAKES 2 TWICE DAILY
  7. ATORVASTATIN [Concomitant]
     Active Substance: ATORVASTATIN
     Indication: BLOOD CHOLESTEROL ABNORMAL
     Dosage: 80 MG, 1X/DAY
  8. TRIAZOLAM. [Concomitant]
     Active Substance: TRIAZOLAM
     Indication: SLEEP DISORDER
     Dosage: 0.25 MG, 1X/DAY
  9. GABAPENTIN. [Concomitant]
     Active Substance: GABAPENTIN
     Indication: SCIATICA
  10. VITAMIN E [Concomitant]
     Active Substance: .ALPHA.-TOCOPHEROL
     Dosage: 400 IU, 1 CAPSULE TWICE DAILY
  11. BENFOTIAMINE [Concomitant]
     Active Substance: BENFOTIAMINE
     Dosage: 150MG, TAKES 4 A DAY
  12. RAMIPRIL. [Concomitant]
     Active Substance: RAMIPRIL
     Indication: BLOOD PRESSURE ABNORMAL
     Dosage: 10 MG, 1X/DAY
  13. AMLODIPINE [Concomitant]
     Active Substance: AMLODIPINE BESYLATE
     Dosage: 5 MG, DAILY
  14. MAGNESIUM OXIDE. [Concomitant]
     Active Substance: MAGNESIUM OXIDE
     Indication: BLOOD MAGNESIUM ABNORMAL
     Dosage: 400MG TABLETS, TAKES 2 TWICE A DAY
  15. VITAMIN C [Concomitant]
     Active Substance: ASCORBIC ACID
     Dosage: 500 MG, UNK (ONCE TWICE DAILY)
  16. COENZYME Q10 [Concomitant]
     Active Substance: UBIDECARENONE
     Dosage: 200MG, 1 DAILY
  17. LATANOPROST. [Concomitant]
     Active Substance: LATANOPROST
     Indication: GLAUCOMA
     Dosage: .005 PERCENT, 1 DROP EACH DAILY
  18. HYDROCHLOROTHIAZIDE. [Concomitant]
     Active Substance: HYDROCHLOROTHIAZIDE
     Indication: FLUID RETENTION
     Dosage: 25MG, TAKES 1 A DAY
  19. FOLIC ACID. [Concomitant]
     Active Substance: FOLIC ACID
     Dosage: 1 MG, 1X/DAY
  20. DILTIAZEM XR [Concomitant]
     Active Substance: DILTIAZEM
     Dosage: 240MG 1 CAPSULE DAILY
  21. ASPIRIN. [Concomitant]
     Active Substance: ASPIRIN
     Dosage: 81 MG, 1X/DAY
  22. VITAMIN D3 [Concomitant]
     Active Substance: CHOLECALCIFEROL
     Dosage: 5000 IU SOFTGEL ONCE A DAY
  23. GABAPENTIN. [Concomitant]
     Active Substance: GABAPENTIN
     Indication: PAIN IN EXTREMITY
  24. DIPHENHYDRAMINE. [Concomitant]
     Active Substance: DIPHENHYDRAMINE
     Dosage: 25MG, TAKES AS NEEDED
  25. TACROLIMUS. [Concomitant]
     Active Substance: TACROLIMUS
     Indication: HEART TRANSPLANT
     Dosage: 1MG CAPSULE, 2 CAPSULES IN MORNING AND 1 CAPSULE AT NIGHT
     Dates: start: 2003
  26. EZETIMIBE. [Concomitant]
     Active Substance: EZETIMIBE
     Dosage: 10 MG ONE A DAY
  27. TYLENOL [Concomitant]
     Active Substance: ACETAMINOPHEN
     Dosage: TAKES AS NEEDED

REACTIONS (2)
  - Drug level decreased [Recovering/Resolving]
  - Product use in unapproved indication [Unknown]
